FAERS Safety Report 4661652-4 (Version None)
Quarter: 2005Q2

REPORT INFORMATION
  Report Type: 
  Country: None (occurrence: None)
  Receive Date: 20050511
  Receipt Date: 20050511
  Transmission Date: 20051028
  Serious: Yes (Hospitalization)
  Sender: FDA-Public Use
  Company Number: None

PATIENT
  Age: 85 Year
  Sex: Male

DRUGS (1)
  1. NAPROXEN [Suspect]
     Indication: PAIN
     Dosage: 500 MG BID
     Dates: start: 20041005

REACTIONS (3)
  - GASTRIC ULCER [None]
  - GASTRITIS EROSIVE [None]
  - HAEMATEMESIS [None]
